FAERS Safety Report 19071887 (Version 1)
Quarter: 2021Q1

REPORT INFORMATION
  Report Type: Spontaneous
  Country: US (occurrence: US)
  Receive Date: 20210329
  Receipt Date: 20210329
  Transmission Date: 20210420
  Serious: Yes (Other)
  Sender: FDA-Public Use
  Company Number: None

PATIENT
  Age: 81 Year
  Sex: Female
  Weight: 62 kg

DRUGS (6)
  1. ELIQUIS [Suspect]
     Active Substance: APIXABAN
     Indication: CARDIAC FIBRILLATION
     Dosage: ?          QUANTITY:1 PILL;?
     Route: 048
     Dates: start: 2019
  2. CLOBETASOL PROPIONATE. [Concomitant]
     Active Substance: CLOBETASOL PROPIONATE
  3. OMEPRAZOLE. [Concomitant]
     Active Substance: OMEPRAZOLE
  4. SCHIFF PROBIOTICS [Concomitant]
  5. CHOLESYRAMINE [Concomitant]
  6. ELIQUIS [Concomitant]
     Active Substance: APIXABAN

REACTIONS (3)
  - Alopecia [None]
  - Epistaxis [None]
  - Throat tightness [None]

NARRATIVE: CASE EVENT DATE: 20200726
